FAERS Safety Report 5065206-X (Version None)
Quarter: 2006Q3

REPORT INFORMATION
  Report Type: 
  Country: None (occurrence: None)
  Receive Date: 20060703
  Receipt Date: 20060315
  Transmission Date: 20061208
  Serious: Yes (Other)
  Sender: FDA-Public Use
  Company Number: 2006-0009326

PATIENT
  Sex: Female

DRUGS (3)
  1. VIREAD [Suspect]
     Indication: HIV INFECTION
  2. NEVIRAPINE [Concomitant]
  3. DIDANOSINE [Concomitant]

REACTIONS (5)
  - DRY MOUTH [None]
  - FANCONI SYNDROME [None]
  - HYPOPHOSPHATAEMIA [None]
  - PARAESTHESIA [None]
  - WEIGHT DECREASED [None]
